FAERS Safety Report 13266112 (Version 6)
Quarter: 2020Q1

REPORT INFORMATION
  Report Type: Spontaneous
  Country: US (occurrence: US)
  Receive Date: 20170223
  Receipt Date: 20200331
  Transmission Date: 20200409
  Serious: Yes (Hospitalization, Other)
  Sender: FDA-Public Use
  Company Number: US-ABBVIE-17P-163-1882325-00

PATIENT
  Sex: Female

DRUGS (3)
  1. CREON [Suspect]
     Active Substance: PANCRELIPASE AMYLASE\PANCRELIPASE LIPASE\PANCRELIPASE PROTEASE
     Indication: PRODUCT USED FOR UNKNOWN INDICATION
     Route: 048
  2. CREON [Suspect]
     Active Substance: PANCRELIPASE AMYLASE\PANCRELIPASE LIPASE\PANCRELIPASE PROTEASE
     Dosage: 3 PILLS WITH MEALS AND 2 WITH SNACKS, IF SOMETHING IS FATTY MIGHT TAKE 4 PILLS
     Route: 048
  3. FLU VACCINE VII [Concomitant]
     Active Substance: INFLUENZA VIRUS VACCINE
     Indication: PRODUCT USED FOR UNKNOWN INDICATION

REACTIONS (13)
  - Diarrhoea [Unknown]
  - Diabetes mellitus [Unknown]
  - Insomnia [Unknown]
  - Mental disorder [Unknown]
  - Confusional state [Unknown]
  - Blood insulin decreased [Unknown]
  - Drug ineffective [Recovered/Resolved]
  - Frustration tolerance decreased [Unknown]
  - Pancreatectomy [Unknown]
  - Abdominal pain upper [Unknown]
  - Urinary tract infection [Unknown]
  - Malaise [Unknown]
  - Accident [Unknown]
